FAERS Safety Report 19482020 (Version 1)
Quarter: 2021Q2

REPORT INFORMATION
  Report Type: Spontaneous
  Country: US (occurrence: US)
  Receive Date: 20210630
  Receipt Date: 20210630
  Transmission Date: 20210717
  Serious: Yes (Death)
  Sender: FDA-Public Use
  Company Number: None

PATIENT
  Age: 72 Year
  Sex: Female

DRUGS (27)
  1. TADALAFIL. [Concomitant]
     Active Substance: TADALAFIL
  2. CHLORIDE [Concomitant]
     Active Substance: CHLORIDE ION
  3. TRAMADOL. [Concomitant]
     Active Substance: TRAMADOL
  4. CALCIUM 500+D [Concomitant]
     Active Substance: CALCIUM\VITAMIN D
  5. SPIRONOLACTONE. [Concomitant]
     Active Substance: SPIRONOLACTONE
  6. ADVAIR?HFA [Concomitant]
  7. POTASSIUM [Concomitant]
     Active Substance: POTASSIUM
  8. ALENDRONATE [Concomitant]
     Active Substance: ALENDRONATE SODIUM
  9. ALBUTEROL  HFA [Concomitant]
     Active Substance: ALBUTEROL SULFATE
  10. SUPER B COMPLEX+C [Concomitant]
  11. TADALAFIL. [Suspect]
     Active Substance: TADALAFIL
     Indication: PULMONARY HYPERTENSION
     Route: 048
     Dates: start: 20191230, end: 20210603
  12. METOLAZONE. [Concomitant]
     Active Substance: METOLAZONE
  13. OMEPRAZOLE. [Concomitant]
     Active Substance: OMEPRAZOLE
  14. TRAZODONE [Concomitant]
     Active Substance: TRAZODONE HYDROCHLORIDE
  15. CENTRUM SILVER [Concomitant]
     Active Substance: MINERALS\VITAMINS
  16. ALBUTEROL INHL NEB SOLN [Concomitant]
     Active Substance: ALBUTEROL
  17. TYVASO [Concomitant]
     Active Substance: TREPROSTINIL
  18. PRAMIPEXOLE. [Concomitant]
     Active Substance: PRAMIPEXOLE
  19. ALPRAZOLAM. [Concomitant]
     Active Substance: ALPRAZOLAM
  20. ATORVASTATIN [Concomitant]
     Active Substance: ATORVASTATIN
  21. AZATHIOPRINE. [Concomitant]
     Active Substance: AZATHIOPRINE
  22. TORSEMIDE. [Concomitant]
     Active Substance: TORSEMIDE
  23. PREGABALIN. [Concomitant]
     Active Substance: PREGABALIN
  24. LEVOTHYROXINE. [Concomitant]
     Active Substance: LEVOTHYROXINE
  25. PREDNISONE. [Concomitant]
     Active Substance: PREDNISONE
  26. FERROUS FUMARATE [Concomitant]
     Active Substance: FERROUS FUMARATE
  27. FLONASE [Concomitant]
     Active Substance: FLUTICASONE PROPIONATE

REACTIONS (10)
  - Hypotension [None]
  - Gastrointestinal arteriovenous malformation [None]
  - Haematemesis [None]
  - Atrial fibrillation [None]
  - Cardiac failure congestive [None]
  - Tachycardia [None]
  - Upper gastrointestinal haemorrhage [None]
  - Hypovolaemic shock [None]
  - Sepsis [None]
  - Acute myocardial infarction [None]

NARRATIVE: CASE EVENT DATE: 20210601
